FAERS Safety Report 25894918 (Version 5)
Quarter: 2025Q4

REPORT INFORMATION
  Report Type: Spontaneous
  Country: EU (occurrence: EU)
  Receive Date: 20251008
  Receipt Date: 20251222
  Transmission Date: 20260117
  Serious: Yes (Other)
  Sender: MYLAN
  Company Number: EU-MMM-Otsuka-Y9HV7LK4

PATIENT
  Age: 48 Year
  Sex: Male
  Weight: 78.5 kg

DRUGS (63)
  1. VENLAFAXINE [Suspect]
     Active Substance: VENLAFAXINE HYDROCHLORIDE
     Indication: Product used for unknown indication
     Dosage: 150 MILLIGRAM, QD, DAILY
     Dates: start: 20250515, end: 20250729
  2. VENLAFAXINE [Suspect]
     Active Substance: VENLAFAXINE HYDROCHLORIDE
     Dosage: 75 MILLIGRAM, QD, DAILY
     Dates: start: 20250508, end: 20250514
  3. VENLAFAXINE [Suspect]
     Active Substance: VENLAFAXINE HYDROCHLORIDE
     Dosage: 187.5 MILLIGRAM, QD, DAILY
     Dates: start: 20250730, end: 20250814
  4. VENLAFAXINE [Suspect]
     Active Substance: VENLAFAXINE HYDROCHLORIDE
     Dosage: 150 MILLIGRAM, QD, DAILY
     Dates: start: 20250815, end: 20250905
  5. PREGABALIN [Suspect]
     Active Substance: PREGABALIN
     Indication: Product used for unknown indication
     Dosage: 250 MILLIGRAM, QD, DAILY
     Dates: start: 20250515, end: 20250519
  6. PREGABALIN [Suspect]
     Active Substance: PREGABALIN
     Dosage: 25 MILLIGRAM, QD, DAILY
     Dates: start: 20250507, end: 20250507
  7. PREGABALIN [Suspect]
     Active Substance: PREGABALIN
     Dosage: 75 MILLIGRAM, QD, DAILY
     Dates: start: 20250508, end: 20250508
  8. PREGABALIN [Suspect]
     Active Substance: PREGABALIN
     Dosage: 125 MILLIGRAM, QD, DAILY
     Dates: start: 20250509, end: 20250509
  9. PREGABALIN [Suspect]
     Active Substance: PREGABALIN
     Dosage: 150 MILLIGRAM, QD, DAILY
     Dates: start: 20250510, end: 20250512
  10. PREGABALIN [Suspect]
     Active Substance: PREGABALIN
     Dosage: 200 MILLIGRAM, QD, DAILY
     Dates: start: 20250513, end: 20250513
  11. PREGABALIN [Suspect]
     Active Substance: PREGABALIN
     Dosage: 225 MILLIGRAM, QD, DAILY
     Dates: start: 20250514, end: 20250514
  12. PREGABALIN [Suspect]
     Active Substance: PREGABALIN
     Dosage: 300 MILLIGRAM, QD, DAILY
     Dates: start: 20250520, end: 20250520
  13. PREGABALIN [Suspect]
     Active Substance: PREGABALIN
     Dosage: 325 MILLIGRAM, QD, DAILY
     Dates: start: 20250521, end: 20250521
  14. PREGABALIN [Suspect]
     Active Substance: PREGABALIN
     Dosage: 350 MILLIGRAM, QD, DAILY
     Dates: start: 20250522, end: 20250527
  15. PREGABALIN [Suspect]
     Active Substance: PREGABALIN
     Dosage: 400 MILLIGRAM, QD, DAILY
     Dates: start: 20250528, end: 20250601
  16. PREGABALIN [Suspect]
     Active Substance: PREGABALIN
     Dosage: 450 MILLIGRAM, QD, DAILY
     Dates: start: 20250602, end: 20250602
  17. PREGABALIN [Suspect]
     Active Substance: PREGABALIN
     Dosage: 500 MILLIGRAM, QD, DAILY
     Dates: start: 20250603, end: 20250604
  18. PREGABALIN [Suspect]
     Active Substance: PREGABALIN
     Dosage: 600 MILLIGRAM, QD, DAILY
     Dates: start: 20250605, end: 20250804
  19. PREGABALIN [Suspect]
     Active Substance: PREGABALIN
     Dosage: 525 MILLIGRAM, QD, DAILY
     Dates: start: 20250805, end: 20250807
  20. PREGABALIN [Suspect]
     Active Substance: PREGABALIN
     Dosage: 450 MILLIGRAM, QD, DAILY
     Dates: start: 20250808, end: 20250812
  21. PREGABALIN [Suspect]
     Active Substance: PREGABALIN
     Dosage: 375 MILLIGRAM, QD, DAILY
     Dates: start: 20250813, end: 20250828
  22. PREGABALIN [Suspect]
     Active Substance: PREGABALIN
     Dosage: 300 MILLIGRAM, QD, DAILY
     Dates: start: 20250829, end: 20250905
  23. ARIPIPRAZOLE [Suspect]
     Active Substance: ARIPIPRAZOLE
     Indication: Product used for unknown indication
     Dosage: 2.5 MILLIGRAM, QD, 2.5 MG, DAILY
     Dates: start: 20250507, end: 20250516
  24. ARIPIPRAZOLE [Suspect]
     Active Substance: ARIPIPRAZOLE
     Dosage: 5 MILLIGRAM, QD, 5 MG, DAILY
     Dates: start: 20250517, end: 20250905
  25. MIRTAZAPINE [Suspect]
     Active Substance: MIRTAZAPINE
     Indication: Product used for unknown indication
     Dosage: 45 MILLIGRAM, QD, DAILY
     Dates: start: 20250507, end: 20250810
  26. MIRTAZAPINE [Suspect]
     Active Substance: MIRTAZAPINE
     Dosage: 30 MILLIGRAM, QD, DAILY
     Dates: start: 20250811, end: 20250905
  27. GINKGO [Suspect]
     Active Substance: GINKGO
     Indication: Product used for unknown indication
     Dosage: 240 MILLIGRAM, QD, DAILY
     Dates: start: 20250507, end: 20250618
  28. ESKETAMINE HYDROCHLORIDE [Suspect]
     Active Substance: ESKETAMINE HYDROCHLORIDE
     Indication: Product used for unknown indication
     Dosage: 12.5 MILLIGRAM, QD, DAILY
     Dates: start: 20250513, end: 20250513
  29. ESKETAMINE HYDROCHLORIDE [Suspect]
     Active Substance: ESKETAMINE HYDROCHLORIDE
     Dosage: 12.5 MILLIGRAM, QD, DAILY
     Dates: start: 20250515, end: 20250515
  30. ESKETAMINE HYDROCHLORIDE [Suspect]
     Active Substance: ESKETAMINE HYDROCHLORIDE
     Dosage: 12.5 MILLIGRAM, QD, DAILY
     Dates: start: 20250520, end: 20250520
  31. ESKETAMINE HYDROCHLORIDE [Suspect]
     Active Substance: ESKETAMINE HYDROCHLORIDE
     Dosage: 25 MILLIGRAM, QD, DAILY
     Dates: start: 20250522, end: 20250522
  32. ESKETAMINE HYDROCHLORIDE [Suspect]
     Active Substance: ESKETAMINE HYDROCHLORIDE
     Dosage: 25 MILLIGRAM, QD, DAILY
     Dates: start: 20250527, end: 20250527
  33. ESKETAMINE HYDROCHLORIDE [Suspect]
     Active Substance: ESKETAMINE HYDROCHLORIDE
     Dosage: 25 MILLIGRAM, QD, DAILY
     Dates: start: 20250603, end: 20250603
  34. ESKETAMINE HYDROCHLORIDE [Suspect]
     Active Substance: ESKETAMINE HYDROCHLORIDE
     Dosage: 37.5 MILLIGRAM, QD, DAILY
     Dates: start: 20250605, end: 20250605
  35. ESKETAMINE HYDROCHLORIDE [Suspect]
     Active Substance: ESKETAMINE HYDROCHLORIDE
     Dosage: 37.5 MILLIGRAM, QD, DAILY
     Dates: start: 20250610, end: 20250610
  36. ESKETAMINE HYDROCHLORIDE [Suspect]
     Active Substance: ESKETAMINE HYDROCHLORIDE
     Dosage: 37.5 MILLIGRAM, QD, DAILY
     Dates: start: 20250617, end: 20250617
  37. ESKETAMINE HYDROCHLORIDE [Suspect]
     Active Substance: ESKETAMINE HYDROCHLORIDE
     Dosage: 37.5 MILLIGRAM, QD, DAILY
     Dates: start: 20250612, end: 20250612
  38. ESKETAMINE HYDROCHLORIDE [Suspect]
     Active Substance: ESKETAMINE HYDROCHLORIDE
     Dosage: 50 MILLIGRAM, QD, DAILY
     Dates: start: 20250619, end: 20250619
  39. ESKETAMINE HYDROCHLORIDE [Suspect]
     Active Substance: ESKETAMINE HYDROCHLORIDE
     Dosage: 50 MILLIGRAM, QD, DAILY
     Dates: start: 20250624, end: 20250624
  40. ESKETAMINE HYDROCHLORIDE [Suspect]
     Active Substance: ESKETAMINE HYDROCHLORIDE
     Dosage: 50 MILLIGRAM, QD, DAILY
     Dates: start: 20250626, end: 20250626
  41. ESKETAMINE HYDROCHLORIDE [Suspect]
     Active Substance: ESKETAMINE HYDROCHLORIDE
     Dosage: 50 MILLIGRAM, QD, DAILY
     Dates: start: 20250707, end: 20250707
  42. ESKETAMINE HYDROCHLORIDE [Suspect]
     Active Substance: ESKETAMINE HYDROCHLORIDE
     Dosage: 50 MILLIGRAM, QD, DAILY
     Dates: start: 20250714, end: 20250714
  43. ESKETAMINE HYDROCHLORIDE [Suspect]
     Active Substance: ESKETAMINE HYDROCHLORIDE
     Dosage: 50 MILLIGRAM, QD, DAILY
     Dates: start: 20250721, end: 20250721
  44. ESKETAMINE HYDROCHLORIDE [Suspect]
     Active Substance: ESKETAMINE HYDROCHLORIDE
     Dosage: 50 MILLIGRAM, QD, DAILY
     Dates: start: 20250728, end: 20250728
  45. ESKETAMINE HYDROCHLORIDE [Suspect]
     Active Substance: ESKETAMINE HYDROCHLORIDE
     Dosage: 37.5 MILLIGRAM, QD, DAILY
     Dates: start: 20250731, end: 20250731
  46. LORAZEPAM [Suspect]
     Active Substance: LORAZEPAM
     Indication: Product used for unknown indication
     Dosage: 2 MILLIGRAM, QD, DAILY
     Dates: start: 20250516, end: 20250609
  47. LORAZEPAM [Suspect]
     Active Substance: LORAZEPAM
     Dosage: 1.75 MILLIGRAM, QD, DAILY
     Dates: start: 20250610, end: 20250611
  48. LORAZEPAM [Suspect]
     Active Substance: LORAZEPAM
     Dosage: 1.5 MILLIGRAM, QD, DAILY
     Dates: start: 20250612, end: 20250614
  49. LORAZEPAM [Suspect]
     Active Substance: LORAZEPAM
     Dosage: 1.25 MILLIGRAM, QD, DAILY
     Dates: start: 20250615, end: 20250618
  50. LORAZEPAM [Suspect]
     Active Substance: LORAZEPAM
     Dosage: 1 MILLIGRAM, QD, DAILY
     Dates: start: 20250619, end: 20250715
  51. MELATONIN [Suspect]
     Active Substance: MELATONIN
     Indication: Product used for unknown indication
     Dosage: 4 MILLIGRAM, QD, DAILY
     Dates: start: 20250507, end: 20250729
  52. MELATONIN [Suspect]
     Active Substance: MELATONIN
     Dosage: 2 MILLIGRAM, QD, DAILY
     Dates: start: 20250730, end: 20250905
  53. LEVOCETIRIZINE DIHYDROCHLORIDE [Suspect]
     Active Substance: LEVOCETIRIZINE DIHYDROCHLORIDE
     Indication: Product used for unknown indication
     Dosage: 10 MILLIGRAM, QD, DAILY
     Dates: start: 20250507, end: 20250905
  54. IVABRADINE [Suspect]
     Active Substance: IVABRADINE
     Indication: Product used for unknown indication
     Dosage: 2.5 MILLIGRAM, QD, DAILY
     Dates: start: 20250507, end: 20250519
  55. IVABRADINE [Suspect]
     Active Substance: IVABRADINE
     Dosage: 5 MILLIGRAM, QD, DAILY
     Dates: start: 20250520, end: 20250715
  56. KETOTIFEN [Suspect]
     Active Substance: KETOTIFEN
     Indication: Product used for unknown indication
     Dosage: 2 MILLIGRAM, QD, DAILY
     Dates: start: 20250507, end: 20250715
  57. ASPIRIN [Concomitant]
     Active Substance: ASPIRIN
     Indication: Product used for unknown indication
     Dosage: 100 MILLIGRAM, QD, DAILY
     Dates: start: 20250507, end: 20250905
  58. Daflon [Concomitant]
     Indication: Product used for unknown indication
     Dosage: 1 GRAM, QD, DAILY
     Dates: start: 20250507, end: 20250905
  59. NALTREXONE [Concomitant]
     Active Substance: NALTREXONE
     Indication: Product used for unknown indication
     Dosage: 3 MILLIGRAM, QD, DAILY
     Dates: start: 20250507, end: 20250613
  60. ENOXAPARIN SODIUM [Concomitant]
     Active Substance: ENOXAPARIN SODIUM
     Indication: Product used for unknown indication
     Dosage: 40 MILLIGRAM, QD, DAILY
     Dates: start: 20250513, end: 20250609
  61. ESKETAMINE [Concomitant]
     Active Substance: ESKETAMINE
     Indication: Product used for unknown indication
     Dosage: 50 MILLIGRAM, QW
  62. LAVENDER OIL [Concomitant]
     Active Substance: LAVENDER OIL
     Indication: Product used for unknown indication
     Dosage: 160 MILLIGRAM, QD, DAILY
     Dates: start: 20250507, end: 20250905
  63. DESLORATADINE [Concomitant]
     Active Substance: DESLORATADINE
     Indication: Product used for unknown indication
     Dosage: 10 MILLIGRAM

REACTIONS (8)
  - Urinary hesitation [Recovering/Resolving]
  - Constipation [Recovering/Resolving]
  - Urinary retention [Recovering/Resolving]
  - Weight increased [Not Recovered/Not Resolved]
  - Functional gastrointestinal disorder [Recovering/Resolving]
  - Dysuria [Recovering/Resolving]
  - Drug level decreased [Recovered/Resolved]
  - Underdose [Unknown]

NARRATIVE: CASE EVENT DATE: 20250507
